FAERS Safety Report 20553510 (Version 1)
Quarter: 2022Q1

REPORT INFORMATION
  Report Type: Report from Study
  Country: US (occurrence: None)
  Receive Date: 20220304
  Receipt Date: 20220304
  Transmission Date: 20220423
  Serious: Yes (Hospitalization, Other)
  Sender: FDA-Public Use
  Company Number: US-Merck Healthcare KGaA-9303088

PATIENT
  Sex: Female

DRUGS (1)
  1. MAVENCLAD [Suspect]
     Active Substance: CLADRIBINE
     Indication: Multiple sclerosis
     Dosage: YEAR ONE THERAPY
     Route: 048
     Dates: start: 20210323

REACTIONS (9)
  - Cerebrovascular accident [Unknown]
  - Multiple sclerosis [Unknown]
  - Dysarthria [Unknown]
  - Aphasia [Unknown]
  - Eye disorder [Unknown]
  - Cataract [Unknown]
  - Lacrimation increased [Unknown]
  - Choking sensation [Unknown]
  - Dysphagia [Unknown]
